FAERS Safety Report 8673143 (Version 2)
Quarter: 2015Q3

REPORT INFORMATION
  Report Type: Report from Study
  Country: US (occurrence: US)
  Receive Date: 20120719
  Receipt Date: 20150701
  Transmission Date: 20151125
  Serious: Yes (Death)
  Sender: FDA-Public Use
  Company Number: US-ROCHE-1087522

PATIENT
  Sex: Female

DRUGS (8)
  1. BETADINE [Concomitant]
     Active Substance: POVIDONE-IODINE
  2. GENTAMICIN. [Concomitant]
     Active Substance: GENTAMICIN
     Route: 065
  3. TOBRADEX [Concomitant]
     Active Substance: DEXAMETHASONE\TOBRAMYCIN
  4. XYLOCAINE [Concomitant]
     Active Substance: LIDOCAINE HYDROCHLORIDE
  5. LUCENTIS [Suspect]
     Active Substance: RANIBIZUMAB
     Indication: RETINAL OEDEMA
     Route: 042
  6. XIBROM [Concomitant]
     Active Substance: BROMFENAC SODIUM
  7. LUCENTIS [Suspect]
     Active Substance: RANIBIZUMAB
     Route: 042
  8. PROPARACAINE [Concomitant]
     Active Substance: PROPARACAINE

REACTIONS (3)
  - Malaise [Unknown]
  - Off label use [Unknown]
  - Death [Fatal]
